FAERS Safety Report 24067835 (Version 1)
Quarter: 2024Q3

REPORT INFORMATION
  Report Type: Report from Study
  Country: MX (occurrence: MX)
  Receive Date: 20240710
  Receipt Date: 20240710
  Transmission Date: 20241016
  Serious: Yes (Other)
  Sender: BIOVITRUM
  Company Number: MX-AstraZeneca-2024A088486

PATIENT
  Age: 3 Month
  Sex: Female
  Weight: 6.9 kg

DRUGS (7)
  1. SYNAGIS [Suspect]
     Active Substance: PALIVIZUMAB
     Indication: Respiratory rate
     Dosage: 0.9 ML, ONCE MONTHLY
     Route: 030
     Dates: end: 20240112
  2. SYNAGIS [Suspect]
     Active Substance: PALIVIZUMAB
     Dosage: 0.9 ML, ONCE MONTHLY
     Route: 030
     Dates: start: 20240213, end: 20240213
  3. SYNAGIS [Suspect]
     Active Substance: PALIVIZUMAB
     Dosage: 0.99 ML, ONCE MONTHLY
     Route: 030
     Dates: start: 20240313, end: 20240313
  4. SYNAGIS [Suspect]
     Active Substance: PALIVIZUMAB
     Dosage: 1 ML, ONCE MONTHLY
     Route: 030
     Dates: start: 20240410, end: 20240410
  5. SYNAGIS [Suspect]
     Active Substance: PALIVIZUMAB
     Dosage: 1 ML, ONCE MONTHLY
     Route: 030
     Dates: start: 20240514, end: 20240514
  6. TROFERIT [Concomitant]
     Indication: Product used for unknown indication
  7. ALDACTONE [Concomitant]
     Active Substance: SPIRONOLACTONE
     Indication: Product used for unknown indication

REACTIONS (7)
  - Malnutrition [Not Recovered/Not Resolved]
  - Pyrexia [Recovered/Resolved]
  - Cough [Recovered/Resolved]
  - Diarrhoea [Recovered/Resolved]
  - Secretion discharge [Recovered/Resolved]
  - Illness [Not Recovered/Not Resolved]
  - Respiratory syncytial virus infection [Recovered/Resolved]

NARRATIVE: CASE EVENT DATE: 20231101
